FAERS Safety Report 20592488 (Version 1)
Quarter: 2022Q1

REPORT INFORMATION
  Report Type: Spontaneous
  Country: PL (occurrence: PL)
  Receive Date: 20220314
  Receipt Date: 20220314
  Transmission Date: 20220424
  Serious: Yes (Hospitalization, Other)
  Sender: FDA-Public Use
  Company Number: PL-ABBVIE-22K-129-4313016-00

PATIENT
  Age: 73 Year
  Sex: Male

DRUGS (7)
  1. VENETOCLAX [Suspect]
     Active Substance: VENETOCLAX
     Indication: Acute lymphocytic leukaemia
     Route: 048
     Dates: start: 20200723
  2. VENETOCLAX [Suspect]
     Active Substance: VENETOCLAX
     Route: 048
     Dates: start: 2020
  3. VENETOCLAX [Suspect]
     Active Substance: VENETOCLAX
     Route: 048
  4. VENETOCLAX [Suspect]
     Active Substance: VENETOCLAX
     Route: 048
     Dates: end: 20211119
  5. AZACITIDINE [Concomitant]
     Active Substance: AZACITIDINE
     Indication: Acute lymphocytic leukaemia
     Dates: start: 20200618, end: 20200624
  6. AZACITIDINE [Concomitant]
     Active Substance: AZACITIDINE
     Dates: start: 20200723, end: 20200729
  7. AZACITIDINE [Concomitant]
     Active Substance: AZACITIDINE
     Dates: end: 20211119

REACTIONS (12)
  - Sepsis [Recovering/Resolving]
  - Sepsis [Recovering/Resolving]
  - COVID-19 pneumonia [Unknown]
  - Leukaemia in remission [Not Recovered/Not Resolved]
  - Myelosuppression [Unknown]
  - Malignant neoplasm progression [Unknown]
  - Pneumonia fungal [Recovering/Resolving]
  - Stenotrophomonas infection [Recovering/Resolving]
  - Neutropenia [Recovered/Resolved]
  - Thrombocytopenia [Recovered/Resolved]
  - Clostridium difficile colitis [Unknown]
  - Infection [Recovered/Resolved]

NARRATIVE: CASE EVENT DATE: 20200101
